FAERS Safety Report 6339951-X (Version None)
Quarter: 2009Q3

REPORT INFORMATION
  Report Type: 
  Country: None (occurrence: None)
  Receive Date: 20090903
  Receipt Date: 20090825
  Transmission Date: 20100115
  Serious: Yes (Hospitalization)
  Sender: FDA-Public Use
  Company Number: ES-MYLANLABS-2009S1015081

PATIENT
  Age: 64 Year
  Sex: Female

DRUGS (2)
  1. PACLITAXEL [Suspect]
     Indication: OVARIAN CANCER
     Dosage: PACLITAXEL 80MG/M2 PLUS GEMCITABINE 1000 MG/M2 EVERY 2 WEEKS
  2. GEMCITABINE [Suspect]
     Indication: OVARIAN CANCER
     Dosage: PACLITAXEL 80MG/M2 PLUS GEMCITABINE 1000 MG/M2 EVERY 2 WEEKS

REACTIONS (1)
  - RHABDOMYOLYSIS [None]
